FAERS Safety Report 5420618-7 (Version None)
Quarter: 2007Q3

REPORT INFORMATION
  Report Type: 
  Country: None (occurrence: None)
  Receive Date: 20070816
  Receipt Date: 20070809
  Transmission Date: 20080115
  Serious: Yes (Hospitalization)
  Sender: FDA-Public Use
  Company Number: OMPQ-PR-0602S-0088

PATIENT
  Age: 59 Year
  Sex: Female

DRUGS (7)
  1. OMNIPAQUE 140 [Suspect]
     Indication: CAROTID ARTERY DISEASE
     Dosage: , SINGLE DOSE, I.A.
     Route: 014
     Dates: start: 20060112, end: 20060112
  2. OMNIPAQUE 140 [Suspect]
  3. FENTANYL [Concomitant]
  4. VALIUM [Concomitant]
  5. LIDOCAINE HCL (XYLOCAINE) [Concomitant]
  6. LEVOTHYROXINE SODIUM [Concomitant]
  7. ASPIRIN [Concomitant]

REACTIONS (6)
  - CSF PROTEIN INCREASED [None]
  - DYSTONIA [None]
  - GAZE PALSY [None]
  - HEMIPARESIS [None]
  - NERVOUS SYSTEM DISORDER [None]
  - POSTURING [None]
